FAERS Safety Report 7375987-8 (Version None)
Quarter: 2011Q1

REPORT INFORMATION
  Report Type: 
  Country: None (occurrence: None)
  Receive Date: 20110317
  Receipt Date: 20110303
  Transmission Date: 20110831
  Serious: Yes (Hospitalization)
  Sender: FDA-Public Use
  Company Number: 2010003304

PATIENT
  Age: 74 Year
  Sex: Male
  Weight: 59.5 kg

DRUGS (15)
  1. CRESTOR [Concomitant]
  2. RABEPRAZOLE SODIUM [Concomitant]
  3. TRANCOLON (MEPENZOLATE BROMIDE) [Concomitant]
  4. ASPIRIN [Concomitant]
  5. ACTOS [Concomitant]
  6. ERLOTINIB (ERLOTINIB) (TABLET) (ERLOTONIB) [Suspect]
     Indication: LUNG ADENOCARCINOMA
     Dosage: 100 MG, QD, ORAL; 100 MG, QD, ORAL; 100 MG, QD, ORAL; 100 MG QD, ORAL;
     Route: 048
     Dates: start: 20090911, end: 20090914
  7. ERLOTINIB (ERLOTINIB) (TABLET) (ERLOTONIB) [Suspect]
     Indication: LUNG ADENOCARCINOMA
     Dosage: 100 MG, QD, ORAL; 100 MG, QD, ORAL; 100 MG, QD, ORAL; 100 MG QD, ORAL;
     Route: 048
     Dates: start: 20100401, end: 20100611
  8. ERLOTINIB (ERLOTINIB) (TABLET) (ERLOTONIB) [Suspect]
     Indication: LUNG ADENOCARCINOMA
     Dosage: 100 MG, QD, ORAL; 100 MG, QD, ORAL; 100 MG, QD, ORAL; 100 MG QD, ORAL;
     Route: 048
     Dates: start: 20081215, end: 20100611
  9. ERLOTINIB (ERLOTINIB) (TABLET) (ERLOTONIB) [Suspect]
     Indication: LUNG ADENOCARCINOMA
     Dosage: 100 MG, QD, ORAL; 100 MG, QD, ORAL; 100 MG, QD, ORAL; 100 MG QD, ORAL;
     Route: 048
     Dates: start: 20090924, end: 20100331
  10. FESIN (SACCHARATED IRON OXIDE) [Concomitant]
  11. AMLODIPINE BESYLATE [Concomitant]
  12. FERROMIA (FERROUS CITRATE) [Concomitant]
  13. AMARYL [Concomitant]
  14. GLYSENNID [Concomitant]
  15. BASEN (VOGLIBOSE) [Concomitant]

REACTIONS (10)
  - RASH [None]
  - GASTRIC CANCER [None]
  - DRY SKIN [None]
  - ONYCHOCLASIS [None]
  - PRURITUS [None]
  - PARONYCHIA [None]
  - DIARRHOEA [None]
  - NEOPLASM MALIGNANT [None]
  - STOMATITIS [None]
  - LUNG ADENOCARCINOMA [None]
